FAERS Safety Report 7683875-2 (Version None)
Quarter: 2011Q3

REPORT INFORMATION
  Report Type: 
  Country: None (occurrence: None)
  Receive Date: 20110815
  Receipt Date: 20110804
  Transmission Date: 20111222
  Serious: Yes (Hospitalization, Other)
  Sender: FDA-Public Use
  Company Number: US-BAYER-201018580NA

PATIENT
  Age: 25 Year
  Sex: Female
  Weight: 95 kg

DRUGS (7)
  1. YAZ [Suspect]
     Indication: CONTRACEPTION
     Dosage: UNK UNK, UNK
     Route: 048
     Dates: start: 20050101, end: 20080101
  2. REGLAN [Concomitant]
  3. MOTRIN [Concomitant]
     Indication: ANALGESIC THERAPY
     Dosage: UNK
  4. PERCOCET [Concomitant]
     Indication: ABDOMINAL PAIN
  5. VICODIN [Concomitant]
  6. AUGMENTIN '125' [Concomitant]
  7. TYLENOL-500 [Concomitant]
     Indication: ANALGESIC THERAPY

REACTIONS (6)
  - DIARRHOEA [None]
  - VOMITING [None]
  - ABDOMINAL PAIN [None]
  - PAIN [None]
  - NAUSEA [None]
  - CHOLELITHIASIS [None]
